FAERS Safety Report 24050381 (Version 1)
Quarter: 2024Q3

REPORT INFORMATION
  Report Type: Spontaneous
  Country: UA (occurrence: UA)
  Receive Date: 20240704
  Receipt Date: 20240704
  Transmission Date: 20241017
  Serious: Yes (Disabling)
  Sender: TEVA
  Company Number: UA-TEVA-VS-3213432

PATIENT
  Age: 59 Year
  Sex: Female

DRUGS (1)
  1. AZITHROMYCIN [Suspect]
     Active Substance: AZITHROMYCIN
     Indication: Respiratory tract infection
     Dosage: 500 MG FOR 6 DAYS
     Route: 065

REACTIONS (2)
  - Deafness bilateral [Unknown]
  - Product use issue [Unknown]
